FAERS Safety Report 4295101-5 (Version None)
Quarter: 2004Q1

REPORT INFORMATION
  Report Type: 
  Country: None (occurrence: None)
  Receive Date: 20040216
  Receipt Date: 20040204
  Transmission Date: 20041129
  Serious: Yes (Other)
  Sender: FDA-Public Use
  Company Number: SE-GLAXOSMITHKLINE-B0322318A

PATIENT
  Sex: Female

DRUGS (1)
  1. SEROXAT [Suspect]
     Dates: start: 19950101, end: 20030101

REACTIONS (18)
  - ALOPECIA [None]
  - DIABETES MELLITUS [None]
  - DRUG INEFFECTIVE [None]
  - DYSPNOEA [None]
  - FLAT AFFECT [None]
  - GAIT DISTURBANCE [None]
  - GASTRIC DISORDER [None]
  - HYPERHIDROSIS [None]
  - MEMORY IMPAIRMENT [None]
  - MUSCULOSKELETAL STIFFNESS [None]
  - NEURALGIA [None]
  - OEDEMA PERIPHERAL [None]
  - PAIN IN EXTREMITY [None]
  - PULMONARY EMBOLISM [None]
  - SINUSITIS [None]
  - SLEEP DISORDER [None]
  - SOCIAL AVOIDANT BEHAVIOUR [None]
  - TREMOR [None]
